FAERS Safety Report 24362949 (Version 6)
Quarter: 2025Q1

REPORT INFORMATION
  Report Type: Spontaneous
  Country: US (occurrence: US)
  Receive Date: 20240925
  Receipt Date: 20250331
  Transmission Date: 20250409
  Serious: No
  Sender: PFIZER
  Company Number: US-PFIZER INC-PV202400124369

PATIENT
  Age: 35 Year
  Sex: Female

DRUGS (3)
  1. TUKYSA [Suspect]
     Active Substance: TUCATINIB
     Dosage: 150MG; 2 TABLETS EVERY 12 HOURS
  2. TUKYSA [Suspect]
     Active Substance: TUCATINIB
     Dosage: 50MG, 4 TABLETS TWICE DAILY
  3. TUKYSA [Suspect]
     Active Substance: TUCATINIB
     Dosage: 150 MG, 2X/DAY (3 PILLS IN THE MORNING, AND 3 PILLS IN THE EVENING)

REACTIONS (6)
  - Skin discolouration [Unknown]
  - Diarrhoea [Unknown]
  - Nausea [Unknown]
  - Vomiting [Unknown]
  - Anosmia [Unknown]
  - Peripheral swelling [Unknown]
